FAERS Safety Report 6466562-8 (Version None)
Quarter: 2009Q4

REPORT INFORMATION
  Report Type: 
  Country: None (occurrence: None)
  Receive Date: 20091201
  Receipt Date: 20091201
  Transmission Date: 20100525
  Serious: Yes (Other)
  Sender: FDA-Public Use
  Company Number: None

PATIENT
  Age: 58 Year
  Sex: Male
  Weight: 70.3075 kg

DRUGS (1)
  1. RAPAFLO [Suspect]
     Indication: BENIGN PROSTATIC HYPERPLASIA
     Dosage: 8 MG ONCE DAILY PO
     Route: 048
     Dates: start: 20091116, end: 20091127

REACTIONS (4)
  - DYSPNOEA [None]
  - RASH [None]
  - SWELLING FACE [None]
  - TONGUE BLISTERING [None]
